FAERS Safety Report 4778562-4 (Version None)
Quarter: 2005Q3

REPORT INFORMATION
  Report Type: 
  Country: None (occurrence: None)
  Receive Date: 20050922
  Receipt Date: 20050909
  Transmission Date: 20060218
  Serious: Yes (Hospitalization)
  Sender: FDA-Public Use
  Company Number: 2005126192

PATIENT
  Sex: Female

DRUGS (4)
  1. DETROL LA [Suspect]
     Indication: ILL-DEFINED DISORDER
  2. CARDIZEM [Concomitant]
  3. DARVOCET [Concomitant]
  4. LIPITOR [Concomitant]

REACTIONS (3)
  - COLONIC HAEMORRHAGE [None]
  - DRUG EFFECT DECREASED [None]
  - DRY MOUTH [None]
